FAERS Safety Report 11130708 (Version 1)
Quarter: 2015Q2

REPORT INFORMATION
  Report Type: Spontaneous
  Country: US (occurrence: US)
  Receive Date: 20150522
  Receipt Date: 20150522
  Transmission Date: 20150821
  Serious: No
  Sender: FDA-Public Use
  Company Number: US-TEVA-564304ACC

PATIENT
  Sex: Female

DRUGS (1)
  1. PARAGARD T 380A [Suspect]
     Active Substance: COPPER
     Indication: CONTRACEPTION
     Route: 015
     Dates: start: 2010

REACTIONS (3)
  - Menstruation irregular [Not Recovered/Not Resolved]
  - Fluid retention [Not Recovered/Not Resolved]
  - Menstruation delayed [Not Recovered/Not Resolved]
